FAERS Safety Report 10364599 (Version 1)
Quarter: 2014Q1

REPORT INFORMATION
  Report Type: Spontaneous
  Country: US (occurrence: None)
  Receive Date: 20140306
  Receipt Date: 20140306
  Transmission Date: 20141002
  Serious: Yes (Other)
  Sender: FDA-Public Use
  Company Number: 163-21880-13106108

PATIENT
  Age: 87 Year
  Sex: Male
  Weight: 81.6 kg

DRUGS (1)
  1. REVLIMID [Suspect]
     Indication: PLASMA CELL MYELOMA
     Dosage: 14 IN 14 D, PO
     Route: 048
     Dates: start: 20130906

REACTIONS (2)
  - Bacterial sepsis [None]
  - Pneumonia bacterial [None]
